FAERS Safety Report 17854021 (Version 1)
Quarter: 2020Q2

REPORT INFORMATION
  Report Type: Spontaneous
  Country: IE (occurrence: IE)
  Receive Date: 20200603
  Receipt Date: 20200603
  Transmission Date: 20200714
  Serious: Yes (Hospitalization, Other)
  Sender: FDA-Public Use
  Company Number: IE-IPCA LABORATORIES LIMITED-IPC-2020-IE-001733

PATIENT

DRUGS (3)
  1. CLONIDINE. [Interacting]
     Active Substance: CLONIDINE
     Indication: DEPRESSION
  2. PROPRANOLOL HYDROCHLORIDE. [Suspect]
     Active Substance: PROPRANOLOL HYDROCHLORIDE
     Indication: HYPERTENSION
     Dosage: UNK
     Route: 065
  3. CLONIDINE. [Interacting]
     Active Substance: CLONIDINE
     Indication: ANXIETY
     Dosage: UNK
     Route: 065

REACTIONS (8)
  - Hypertensive crisis [Recovered/Resolved]
  - Stress polycythaemia [Recovered/Resolved]
  - Withdrawal hypertension [Recovered/Resolved]
  - Posterior reversible encephalopathy syndrome [Recovered/Resolved]
  - Acute kidney injury [Recovered/Resolved]
  - Drug interaction [Unknown]
  - Renal artery thrombosis [Recovered/Resolved]
  - Withdrawal syndrome [Unknown]
